FAERS Safety Report 9922614 (Version 1)
Quarter: 2014Q1

REPORT INFORMATION
  Report Type: Spontaneous
  Country: US (occurrence: US)
  Receive Date: 20140225
  Receipt Date: 20140225
  Transmission Date: 20141002
  Serious: No
  Sender: FDA-Public Use
  Company Number: US-MYLANLABS-2013S1002055

PATIENT
  Sex: Male
  Weight: 81.65 kg

DRUGS (3)
  1. DIVALPROEX SODIUM EXTENDED-RELEASE TABLETS [Suspect]
     Indication: CONVULSION
     Route: 048
     Dates: start: 2012
  2. DIVALPROEX SODIUM EXTENDED-RELEASE TABLETS [Suspect]
     Indication: CONVULSION
     Route: 048
     Dates: start: 2012
  3. VITAMINS [Concomitant]

REACTIONS (1)
  - Dry mouth [Not Recovered/Not Resolved]
